FAERS Safety Report 8285945-7 (Version None)
Quarter: 2012Q2

REPORT INFORMATION
  Report Type: 
  Country: None (occurrence: None)
  Receive Date: 20120415
  Receipt Date: 20120402
  Transmission Date: 20120825
  Serious: No
  Sender: FDA-Public Use
  Company Number: CA-ELI_LILLY_AND_COMPANY-CA201201003131

PATIENT
  Age: 64 Year
  Sex: Female
  Weight: 59 kg

DRUGS (25)
  1. VOLTAREN [Concomitant]
  2. FORTEO [Suspect]
     Indication: OSTEOPOROSIS
     Dosage: 20 UG, QD
     Route: 058
     Dates: start: 20110907
  3. DOCUSATE SODIUM [Concomitant]
  4. ATIVAN [Concomitant]
  5. SENOKOT [Concomitant]
  6. FUROSEMIDE [Concomitant]
  7. FENTANYL-100 [Concomitant]
  8. CELEXA [Concomitant]
  9. D-TABS [Concomitant]
  10. VITAMIN A [Concomitant]
  11. ASPIRIN [Concomitant]
  12. NAPROSYN [Concomitant]
  13. VITAMIN D [Suspect]
  14. POTASSIUM [Concomitant]
  15. POTASSIUM CHLORIDE [Concomitant]
  16. SIMVASTATIN [Concomitant]
  17. CREON [Concomitant]
  18. MIRTAZAPINE [Concomitant]
  19. DOMPERIDONE [Concomitant]
  20. FERROUS SULFATE TAB [Concomitant]
  21. CLONAZEPAM [Concomitant]
  22. MULTI-VITAMINS [Concomitant]
  23. NEXIUM [Concomitant]
  24. CALCIUM CARBONATE [Concomitant]
  25. FLURAZEPAM [Concomitant]

REACTIONS (1)
  - BONE DISORDER [None]
